FAERS Safety Report 6307347-2 (Version None)
Quarter: 2009Q3

REPORT INFORMATION
  Report Type: 
  Country: None (occurrence: None)
  Receive Date: 20090813
  Receipt Date: 20090803
  Transmission Date: 20100115
  Serious: Yes (Other)
  Sender: FDA-Public Use
  Company Number: GB-JNJFOC-20090800811

PATIENT
  Age: 58 Year
  Sex: Male
  Weight: 78 kg

DRUGS (11)
  1. REMICADE [Suspect]
     Indication: RHEUMATOID ARTHRITIS
     Route: 042
  2. PREDNISOLONE [Concomitant]
  3. ACTONEL [Concomitant]
  4. CALCICHEW D3 FORTE [Concomitant]
  5. FOLIC ACID [Concomitant]
  6. RAMIPRIL [Concomitant]
  7. VOLTAREN [Concomitant]
  8. ZANTAC [Concomitant]
  9. ACETAMINOPHEN WITH PROPOXYPHENE HCL TAB [Concomitant]
  10. PLAQUENIL [Concomitant]
  11. MINOCYCLINE [Concomitant]

REACTIONS (1)
  - BASAL CELL CARCINOMA [None]
